FAERS Safety Report 22092782 (Version 5)
Quarter: 2025Q2

REPORT INFORMATION
  Report Type: Spontaneous
  Country: JP (occurrence: JP)
  Receive Date: 20230314
  Receipt Date: 20250613
  Transmission Date: 20250716
  Serious: Yes (Hospitalization, Other)
  Sender: VIIV
  Company Number: JP-VIIV HEALTHCARE LIMITED-JP2023JPN036801

PATIENT
  Age: 39 Year
  Sex: Male
  Weight: 60 kg

DRUGS (6)
  1. VOCABRIA [Suspect]
     Active Substance: CABOTEGRAVIR SODIUM
     Indication: HIV infection
  2. RILPIVIRINE [Suspect]
     Active Substance: RILPIVIRINE
     Indication: HIV infection
  3. VOCABRIA [Suspect]
     Active Substance: CABOTEGRAVIR SODIUM
     Indication: HIV infection
  4. EDURANT [Suspect]
     Active Substance: RILPIVIRINE HYDROCHLORIDE
     Indication: HIV infection
  5. TRIUMEQ [Concomitant]
     Active Substance: ABACAVIR SULFATE\DOLUTEGRAVIR SODIUM\LAMIVUDINE
     Indication: HIV infection
  6. DOVATO [Concomitant]
     Active Substance: DOLUTEGRAVIR SODIUM\LAMIVUDINE
     Indication: HIV infection

REACTIONS (4)
  - Hepatitis B [Recovering/Resolving]
  - Hepatitis B DNA increased [Unknown]
  - Abdominal pain upper [Recovering/Resolving]
  - Chromaturia [Unknown]

NARRATIVE: CASE EVENT DATE: 20230214
